FAERS Safety Report 23198402 (Version 2)
Quarter: 2023Q4

REPORT INFORMATION
  Report Type: Other
  Country: US (occurrence: US)
  Receive Date: 20231117
  Receipt Date: 20231118
  Transmission Date: 20240110
  Serious: No
  Sender: FDA-Public Use
  Company Number: US-TRAVERE-2023TVT00468

PATIENT
  Age: 42 Year
  Sex: Male

DRUGS (1)
  1. FILSPARI [Suspect]
     Active Substance: SPARSENTAN
     Indication: Product used for unknown indication
     Dosage: 200MG ONCE A DAY FOR 14 DAYS, THEN TAKE 2 TABLETS.
     Route: 048

REACTIONS (3)
  - Renal pain [Recovering/Resolving]
  - Abdominal pain [Recovered/Resolved]
  - Insomnia [Recovering/Resolving]

NARRATIVE: CASE EVENT DATE: 20220801
